FAERS Safety Report 4384154-1 (Version None)
Quarter: 2004Q2

REPORT INFORMATION
  Report Type: 
  Country: None (occurrence: None)
  Receive Date: 20040623
  Receipt Date: 20040623
  Transmission Date: 20050107
  Serious: Yes (Life-Threatening, Hospitalization)
  Sender: FDA-Public Use
  Company Number: None

PATIENT
  Sex: Male

DRUGS (2)
  1. HYDROMORPHONE 1 MG [Suspect]
     Indication: BONE PAIN
     Dosage: 1-2 MG Q 4 HOURS P INTRAVENOUS
     Route: 042
     Dates: start: 20040512, end: 20040513
  2. HYDROMORPHONE 1 MG [Suspect]
     Indication: FRACTURE
     Dosage: 1-2 MG Q 4 HOURS P INTRAVENOUS
     Route: 042
     Dates: start: 20040512, end: 20040513

REACTIONS (3)
  - COMA [None]
  - HYPOTENSION [None]
  - RESPIRATORY DEPRESSION [None]
